FAERS Safety Report 19358409 (Version 1)
Quarter: 2021Q2

REPORT INFORMATION
  Report Type: Spontaneous
  Country: US (occurrence: US)
  Receive Date: 20210602
  Receipt Date: 20210602
  Transmission Date: 20210717
  Serious: Yes (Death, Other)
  Sender: FDA-Public Use
  Company Number: US-NOVOPROD-794720

PATIENT
  Age: 66 Year
  Sex: Male

DRUGS (1)
  1. OZEMPIC [Suspect]
     Active Substance: SEMAGLUTIDE
     Indication: DIABETES MELLITUS
     Dosage: UNK
     Route: 058

REACTIONS (6)
  - Death [Fatal]
  - Pain [Unknown]
  - Cardiac disorder [Unknown]
  - Diabetic ketoacidosis [Unknown]
  - Pain in extremity [Unknown]
  - Dyspepsia [Unknown]

NARRATIVE: CASE EVENT DATE: 202103
